FAERS Safety Report 21799013 (Version 1)
Quarter: 2022Q4

REPORT INFORMATION
  Report Type: Spontaneous
  Country: US (occurrence: None)
  Receive Date: 20221230
  Receipt Date: 20221230
  Transmission Date: 20230113
  Serious: Yes (Other)
  Sender: FDA-Public Use
  Company Number: 2022A417048

PATIENT
  Age: 13026 Day
  Sex: Female
  Weight: 70.3 kg

DRUGS (1)
  1. TEZSPIRE [Suspect]
     Active Substance: TEZEPELUMAB-EKKO
     Indication: Asthma
     Dosage: 210.0MG UNKNOWN
     Route: 058
     Dates: start: 20220121

REACTIONS (7)
  - Anaphylactic reaction [Unknown]
  - Dizziness [Unknown]
  - Nausea [Unknown]
  - Taste disorder [Unknown]
  - Paraesthesia oral [Unknown]
  - Rash [Unknown]
  - Oropharyngeal discomfort [Unknown]

NARRATIVE: CASE EVENT DATE: 20220121
